FAERS Safety Report 7087789-0 (Version None)
Quarter: 2010Q4

REPORT INFORMATION
  Report Type: 
  Country: None (occurrence: None)
  Receive Date: 20101108
  Receipt Date: 20101025
  Transmission Date: 20110411
  Serious: Yes (Other)
  Sender: FDA-Public Use
  Company Number: ES-ELI_LILLY_AND_COMPANY-ES201010005788

PATIENT
  Sex: Female
  Weight: 62 kg

DRUGS (8)
  1. FORTEO [Suspect]
     Indication: OSTEOPOROSIS
     Dosage: 20 UG, DAILY (1/D)
     Route: 058
     Dates: start: 20090427
  2. PROTELOS [Concomitant]
     Indication: OSTEOPOROSIS
     Dosage: UNK, UNKNOWN
     Route: 048
  3. DIOVAN HCT [Concomitant]
     Indication: HYPERTENSION
     Dosage: UNK, DAILY (1/D)
     Route: 048
  4. VITAMINA B1 [Concomitant]
     Dosage: 300 MG, DAILY (1/D)
     Route: 048
  5. IDEOS [Concomitant]
     Indication: OSTEOPOROSIS
     Dosage: UNK, DAILY (1/D)
     Route: 048
  6. ARTEDIL [Concomitant]
     Indication: HYPERTENSION
     Dosage: 10 MG, DAILY (1/D)
     Route: 048
  7. EVITEX A+E FUERTE [Concomitant]
     Indication: DYSPHONIA
     Dosage: UNK, EVERY 8 HRS THE FIRST WEEK THE MONTH FOR THE FOLLOWING 3 MONTHS
     Route: 048
     Dates: start: 20100801
  8. EMEPROTON [Concomitant]
     Indication: PROPHYLAXIS
     Dosage: UNK, DAILY (1/D)
     Route: 048

REACTIONS (3)
  - CHEST PAIN [None]
  - HYPOTENSION [None]
  - MUSCLE SPASMS [None]
